FAERS Safety Report 4596625-3 (Version None)
Quarter: 2005Q1

REPORT INFORMATION
  Report Type: 
  Country: None (occurrence: None)
  Receive Date: 20050228
  Receipt Date: 20050214
  Transmission Date: 20050727
  Serious: Yes (Other)
  Sender: FDA-Public Use
  Company Number: 2005028764

PATIENT
  Age: 45 Year
  Sex: Female

DRUGS (1)
  1. TOLTERODINE TARTRATE [Suspect]
     Indication: URGE INCONTINENCE
     Dosage: 4 MG (4 MG, 1 IN 1 D), ORAL
     Route: 048
     Dates: start: 20050129, end: 20050208

REACTIONS (6)
  - ABDOMINAL PAIN UPPER [None]
  - ANAL DISCOMFORT [None]
  - BURNING SENSATION [None]
  - ERYTHEMA [None]
  - PAIN [None]
  - PAINFUL DEFAECATION [None]
